FAERS Safety Report 23247757 (Version 1)
Quarter: 2023Q4

REPORT INFORMATION
  Report Type: Other
  Country: SE (occurrence: SE)
  Receive Date: 20231130
  Receipt Date: 20231130
  Transmission Date: 20240110
  Serious: Yes (Hospitalization)
  Sender: FDA-Public Use
  Company Number: None

PATIENT
  Age: 55 Year
  Sex: Female
  Weight: 76 kg

DRUGS (2)
  1. OMNIPAQUE [Suspect]
     Active Substance: IOHEXOL
     Indication: X-ray with contrast
     Dosage: 87ML
     Route: 042
     Dates: start: 20231110, end: 20231110
  2. OMNIPAQUE [Suspect]
     Active Substance: IOHEXOL
     Indication: Product used for unknown indication

REACTIONS (3)
  - Secretion discharge [Unknown]
  - Pharyngeal swelling [Unknown]
  - Discomfort [Unknown]

NARRATIVE: CASE EVENT DATE: 20231110
